FAERS Safety Report 15762131 (Version 1)
Quarter: 2018Q4

REPORT INFORMATION
  Report Type: Spontaneous
  Country: US (occurrence: US)
  Receive Date: 20181226
  Receipt Date: 20181226
  Transmission Date: 20190205
  Serious: No
  Sender: FDA-Public Use
  Company Number: US-NEUROCRINE BIOSCIENCES INC.-2018NBI03570

PATIENT
  Age: 64 Year
  Sex: Male

DRUGS (5)
  1. QUETIAPINE. [Concomitant]
     Active Substance: QUETIAPINE
  2. HYDROXYZINE [Concomitant]
     Active Substance: HYDROXYZINE HYDROCHLORIDE
  3. INGREZZA [Suspect]
     Active Substance: VALBENAZINE
     Indication: TARDIVE DYSKINESIA
     Route: 048
     Dates: start: 2018
  4. RISPERIDONE. [Concomitant]
     Active Substance: RISPERIDONE
  5. DOXEPIN [Concomitant]
     Active Substance: DOXEPIN

REACTIONS (3)
  - Dysarthria [Unknown]
  - Lethargy [Unknown]
  - Confusional state [Unknown]

NARRATIVE: CASE EVENT DATE: 2018
